FAERS Safety Report 10587554 (Version 7)
Quarter: 2018Q3

REPORT INFORMATION
  Report Type: Report from Study
  Country: CA (occurrence: CA)
  Receive Date: 20141117
  Receipt Date: 20180731
  Transmission Date: 20181010
  Serious: Yes (Other)
  Sender: FDA-Public Use
  Company Number: CA-ROCHE-1489304

PATIENT
  Age: 59 Year
  Sex: Female

DRUGS (16)
  1. FOLIC ACID. [Concomitant]
     Active Substance: FOLIC ACID
  2. NEXIUM [Concomitant]
     Active Substance: ESOMEPRAZOLE MAGNESIUM
  3. CELLCEPT [Concomitant]
     Active Substance: MYCOPHENOLATE MOFETIL\MYCOPHENOLATE MOFETIL HYDROCHLORIDE
     Route: 065
  4. METHYLPREDNISOLONE. [Concomitant]
     Active Substance: METHYLPREDNISOLONE
     Route: 042
     Dates: start: 20140218
  5. AVAPRO [Concomitant]
     Active Substance: IRBESARTAN
  6. LOSEC [Concomitant]
     Active Substance: OMEPRAZOLE
  7. PARIET [Concomitant]
     Active Substance: RABEPRAZOLE SODIUM
  8. IMURAN [Concomitant]
     Active Substance: AZATHIOPRINE
  9. PREDNISONE. [Concomitant]
     Active Substance: PREDNISONE
  10. ALENDRONATE [Concomitant]
     Active Substance: ALENDRONATE SODIUM
  11. IRBESARTAN. [Concomitant]
     Active Substance: IRBESARTAN
  12. ACETAMINOPHEN. [Concomitant]
     Active Substance: ACETAMINOPHEN
     Indication: PREMEDICATION
     Route: 048
     Dates: start: 20140218
  13. FOSAMAX [Concomitant]
     Active Substance: ALENDRONATE SODIUM
  14. DIPHENHYDRAMINE. [Concomitant]
     Active Substance: DIPHENHYDRAMINE
     Route: 048
     Dates: start: 20140218
  15. RITUXAN [Suspect]
     Active Substance: RITUXIMAB
     Indication: POLYMYOSITIS
     Dosage: DAY 1, 15, LAST DOSE OF INFUSION RECEIVED ON 04/MAR/2014.
     Route: 042
     Dates: start: 20140218
  16. DOMPERIDONE [Concomitant]
     Active Substance: DOMPERIDONE

REACTIONS (15)
  - Cough [Recovered/Resolved]
  - Myalgia [Recovered/Resolved]
  - Infusion related reaction [Recovered/Resolved]
  - Back pain [Not Recovered/Not Resolved]
  - Headache [Recovered/Resolved]
  - Nerve compression [Not Recovered/Not Resolved]
  - Ill-defined disorder [Unknown]
  - Intentional product use issue [Unknown]
  - Blood pressure systolic decreased [Unknown]
  - Polymyositis [Unknown]
  - Pain in extremity [Not Recovered/Not Resolved]
  - Off label use [Unknown]
  - Throat irritation [Recovered/Resolved]
  - Blood pressure systolic abnormal [Unknown]
  - Arthralgia [Recovered/Resolved]

NARRATIVE: CASE EVENT DATE: 2016
